FAERS Safety Report 4440716-4 (Version None)
Quarter: 2004Q3

REPORT INFORMATION
  Report Type: 
  Country: None (occurrence: None)
  Receive Date: 20040825
  Receipt Date: 20040810
  Transmission Date: 20050211
  Serious: Yes (Death, Hospitalization)
  Sender: FDA-Public Use
  Company Number: WSDF_00421

PATIENT
  Age: 62 Year
  Sex: Female
  Weight: 133 kg

DRUGS (1)
  1. WINRHO SDF [Suspect]
     Indication: IDIOPATHIC THROMBOCYTOPENIC PURPURA
     Dosage: 60.1 MCG/KG ONCE IV
     Route: 042
     Dates: start: 20040804, end: 20040804

REACTIONS (15)
  - AGITATION [None]
  - ANURIA [None]
  - BLOOD BILIRUBIN INCREASED [None]
  - BLOOD CREATINE PHOSPHOKINASE INCREASED [None]
  - BLOOD CREATININE INCREASED [None]
  - BODY TEMPERATURE INCREASED [None]
  - CONFUSIONAL STATE [None]
  - ELECTROCARDIOGRAM ABNORMAL [None]
  - HAEMOLYSIS [None]
  - HYPERHIDROSIS [None]
  - HYPOGLYCAEMIA [None]
  - HYPOTENSION [None]
  - JAUNDICE [None]
  - MEDICATION ERROR [None]
  - OXYGEN SATURATION DECREASED [None]
